FAERS Safety Report 14950725 (Version 1)
Quarter: 2018Q2

REPORT INFORMATION
  Report Type: Spontaneous
  Country: GR (occurrence: GR)
  Receive Date: 20180530
  Receipt Date: 20180530
  Transmission Date: 20180711
  Serious: Yes (Other)
  Sender: FDA-Public Use
  Company Number: PHHY2018GR007474

PATIENT
  Age: 64 Year
  Sex: Female

DRUGS (1)
  1. TASIGNA [Suspect]
     Active Substance: NILOTINIB
     Indication: CHRONIC MYELOID LEUKAEMIA
     Route: 065

REACTIONS (3)
  - Retroperitoneal fibrosis [Recovered/Resolved]
  - Ureteric obstruction [Recovered/Resolved]
  - Bone pain [Recovered/Resolved]
